FAERS Safety Report 24093188 (Version 1)
Quarter: 2024Q3

REPORT INFORMATION
  Report Type: Spontaneous
  Country: US (occurrence: US)
  Receive Date: 20240715
  Receipt Date: 20240715
  Transmission Date: 20241016
  Serious: Yes (Hospitalization)
  Sender: DR REDDYS
  Company Number: US-DRL-USA-LIT/USA/24/0010100

PATIENT
  Age: 51 Year
  Sex: Male

DRUGS (1)
  1. MINOCYCLINE [Suspect]
     Active Substance: MINOCYCLINE HYDROCHLORIDE
     Indication: Acne
     Dosage: ORAL MINOCYCLINE 75MG TWICE A DAY FOR 20?YEARS
     Route: 048

REACTIONS (2)
  - Bone hyperpigmentation [Unknown]
  - Product use in unapproved indication [Unknown]
